FAERS Safety Report 8101812-3 (Version None)
Quarter: 2012Q1

REPORT INFORMATION
  Report Type: 
  Country: None (occurrence: None)
  Receive Date: 20120131
  Receipt Date: 20120125
  Transmission Date: 20120608
  Serious: Yes (Other)
  Sender: FDA-Public Use
  Company Number: PHHY2012FR007058

PATIENT
  Age: 52 Year
  Sex: Male

DRUGS (5)
  1. TEGRETOL [Suspect]
     Dosage: 4 TABLETS DAILY
     Dates: start: 20120123
  2. TEGRETOL [Suspect]
     Dosage: 1 TABLET DAILY
  3. XANAX [Concomitant]
  4. TRIMEPRAZINE TARTRATE [Concomitant]
     Dosage: 2 TO 3 TABLETS DAILY
  5. PREVISCAN [Concomitant]

REACTIONS (4)
  - FATIGUE [None]
  - TOXICITY TO VARIOUS AGENTS [None]
  - SOMNOLENCE [None]
  - TACHYCARDIA [None]
